FAERS Safety Report 5310759-7 (Version None)
Quarter: 2007Q2

REPORT INFORMATION
  Report Type: 
  Country: None (occurrence: None)
  Receive Date: 20070428
  Receipt Date: 20070419
  Transmission Date: 20071010
  Serious: Yes (Other)
  Sender: FDA-Public Use
  Company Number: NO-PFIZER INC-2007026879

PATIENT
  Sex: Female

DRUGS (2)
  1. TERRAMYCIN OTIC OINTMENT WITH POLYMYXIN B SULFATE [Suspect]
     Indication: OTITIS EXTERNA
     Route: 061
     Dates: start: 20070402, end: 20070402
  2. VIVAL [Concomitant]
     Route: 048

REACTIONS (1)
  - HYPOACUSIS [None]
